FAERS Safety Report 22145181 (Version 5)
Quarter: 2023Q2

REPORT INFORMATION
  Report Type: Spontaneous
  Country: US (occurrence: US)
  Receive Date: 20230328
  Receipt Date: 20230524
  Transmission Date: 20230722
  Serious: Yes (Other)
  Sender: FDA-Public Use
  Company Number: US-BRISTOL-MYERS SQUIBB COMPANY-2023-040946

PATIENT
  Age: 66 Year
  Sex: Male

DRUGS (1)
  1. REVLIMID [Suspect]
     Active Substance: LENALIDOMIDE
     Indication: Plasma cell myeloma
     Dosage: TAKE 1 CAPSULE BY ?MOUTH EVERY DAY ON ?DAYS 1-21 FOLLOWED
     Route: 048
     Dates: start: 20230306

REACTIONS (3)
  - Hypersensitivity [Not Recovered/Not Resolved]
  - Rash [Recovering/Resolving]
  - Neuropathy peripheral [Not Recovered/Not Resolved]
